FAERS Safety Report 16097016 (Version 1)
Quarter: 2019Q1

REPORT INFORMATION
  Report Type: Report from Study
  Country: US (occurrence: US)
  Receive Date: 20190320
  Receipt Date: 20190320
  Transmission Date: 20190418
  Serious: No
  Sender: FDA-Public Use
  Company Number: PHEH2019US010405

PATIENT
  Sex: Female

DRUGS (2)
  1. GLEEVEC [Suspect]
     Active Substance: IMATINIB MESYLATE
     Indication: PRODUCT USED FOR UNKNOWN INDICATION
     Dosage: 400 MG, QD
     Route: 048
     Dates: start: 20190216, end: 20190225
  2. GLEEVEC [Suspect]
     Active Substance: IMATINIB MESYLATE
     Dosage: 200 MG, QD
     Route: 048

REACTIONS (9)
  - Dyspnoea [Recovering/Resolving]
  - Vision blurred [Unknown]
  - Lacrimation increased [Unknown]
  - Swelling face [Unknown]
  - Swelling [Unknown]
  - Cardiac disorder [Unknown]
  - Laryngitis [Unknown]
  - Weight increased [Unknown]
  - Diarrhoea [Unknown]
